FAERS Safety Report 11267149 (Version 1)
Quarter: 2015Q3

REPORT INFORMATION
  Report Type: Report from Study
  Country: US (occurrence: US)
  Receive Date: 20150713
  Receipt Date: 20150713
  Transmission Date: 20151125
  Serious: Yes (Other)
  Sender: FDA-Public Use
  Company Number: US-CELGENE-USA-2015070060

PATIENT
  Sex: Female

DRUGS (1)
  1. REVLIMID [Suspect]
     Active Substance: LENALIDOMIDE
     Indication: PLASMA CELL MYELOMA
     Route: 048
     Dates: start: 2013

REACTIONS (5)
  - Hip fracture [Unknown]
  - Fall [Unknown]
  - Ligament sprain [Unknown]
  - Concussion [Unknown]
  - Ear injury [Unknown]

NARRATIVE: CASE EVENT DATE: 201506
